FAERS Safety Report 5598056-6 (Version None)
Quarter: 2008Q1

REPORT INFORMATION
  Report Type: 
  Country: None (occurrence: None)
  Receive Date: 20080116
  Receipt Date: 20080115
  Transmission Date: 20080703
  Serious: Yes (Hospitalization)
  Sender: FDA-Public Use
  Company Number: 02100-EUR-07-0180

PATIENT
  Age: 87 Year
  Sex: Male

DRUGS (6)
  1. CILOSTAZOL [Suspect]
     Indication: INTERMITTENT CLAUDICATION
     Dosage: 200 MG ORAL
     Route: 048
     Dates: start: 20070401, end: 20071024
  2. ASPIRIN [Concomitant]
  3. DELMUNO [Concomitant]
  4. SIMVASTATIN [Concomitant]
  5. METFORMIN HYDROCHLORIDE [Concomitant]
  6. RAMIPRIL [Concomitant]

REACTIONS (4)
  - CONDITION AGGRAVATED [None]
  - NECROSIS [None]
  - PAIN [None]
  - PERIPHERAL ARTERIAL OCCLUSIVE DISEASE [None]
